FAERS Safety Report 5886765-0 (Version None)
Quarter: 2008Q3

REPORT INFORMATION
  Report Type: 
  Country: None (occurrence: None)
  Receive Date: 20080917
  Receipt Date: 20080910
  Transmission Date: 20090109
  Serious: Yes (Hospitalization, Other)
  Sender: FDA-Public Use
  Company Number: US-BRISTOL-MYERS SQUIBB COMPANY-14317507

PATIENT
  Age: 49 Year
  Sex: Male
  Weight: 107 kg

DRUGS (4)
  1. ERBITUX [Suspect]
     Indication: TONSIL CANCER
     Dosage: START DATE OF FIRST COURSE 22JUL08. DATE OF COURSE ASSOCIATED WITH REPORT 25AUG08.
     Route: 042
     Dates: start: 20080804, end: 20080804
  2. CISPLATIN [Suspect]
     Indication: TONSIL CANCER
     Dosage: START DATE OF FIRST COURSE 22JUL08.
     Dates: start: 20080729, end: 20080729
  3. RADIATION THERAPY [Suspect]
     Indication: TONSIL CANCER
     Dates: start: 20080729
  4. DURAGESIC-100 [Concomitant]
     Indication: ORAL PAIN
     Route: 062

REACTIONS (2)
  - DEEP VEIN THROMBOSIS [None]
  - DEHYDRATION [None]
